FAERS Safety Report 25822016 (Version 1)
Quarter: 2025Q3

REPORT INFORMATION
  Report Type: Spontaneous
  Country: RU (occurrence: RU)
  Receive Date: 20250919
  Receipt Date: 20250919
  Transmission Date: 20251021
  Serious: Yes (Hospitalization)
  Sender: NOVITIUM PHARMA
  Company Number: RU-NOVITIUMPHARMA-2025RUNVP02356

PATIENT
  Age: 10 Year
  Sex: Male
  Weight: 44 kg

DRUGS (16)
  1. ACYCLOVIR [Suspect]
     Active Substance: ACYCLOVIR
     Indication: Herpes virus infection
     Route: 048
  2. Bacitracin/Neomycin [Concomitant]
     Indication: Rash
  3. Bacitracin/Neomycin [Concomitant]
  4. CHLORHEXIDINE [Concomitant]
     Active Substance: CHLORHEXIDINE
     Indication: Rash
     Dates: start: 20240916
  5. CHLORHEXIDINE [Concomitant]
     Active Substance: CHLORHEXIDINE
     Indication: Dermatitis infected
  6. Boric-Acid/Resorcinol [Concomitant]
     Indication: Rash
     Dates: start: 20240916
  7. Boric-Acid/Resorcinol [Concomitant]
     Indication: Dermatitis infected
  8. HYDROCORTISONE\OXYTETRACYCLINE [Concomitant]
     Active Substance: HYDROCORTISONE\OXYTETRACYCLINE
     Indication: Rash
     Dates: start: 20240916
  9. HYDROCORTISONE\OXYTETRACYCLINE [Concomitant]
     Active Substance: HYDROCORTISONE\OXYTETRACYCLINE
     Indication: Dermatitis infected
  10. ZINC [Concomitant]
     Active Substance: ZINC
     Indication: Skin weeping
     Dates: start: 20240916
  11. ZINC [Concomitant]
     Active Substance: ZINC
     Indication: Pruritus
  12. CETIRIZINE [Concomitant]
     Active Substance: CETIRIZINE HYDROCHLORIDE
     Indication: Skin weeping
     Route: 048
  13. CETIRIZINE [Concomitant]
     Active Substance: CETIRIZINE HYDROCHLORIDE
     Indication: Pruritus
  14. Betamethasone/Clotrimazole/Gentamicin [Concomitant]
     Indication: Skin plaque
  15. FLUCONAZOLE [Concomitant]
     Active Substance: FLUCONAZOLE
     Indication: Fungal infection
  16. CEFTRIAXONE [Concomitant]
     Active Substance: CEFTRIAXONE
     Indication: Eczema
     Route: 042

REACTIONS (1)
  - Condition aggravated [Unknown]
